FAERS Safety Report 6948056-6 (Version None)
Quarter: 2010Q3

REPORT INFORMATION
  Report Type: 
  Country: None (occurrence: None)
  Receive Date: 20100828
  Receipt Date: 20091013
  Transmission Date: 20110219
  Serious: No
  Sender: FDA-Public Use
  Company Number: US-ABBOTT-09P-163-0603143-00

PATIENT
  Sex: Female

DRUGS (6)
  1. NIASPAN [Suspect]
     Indication: LOW DENSITY LIPOPROTEIN INCREASED
     Dates: start: 20090401, end: 20090601
  2. NIASPAN [Suspect]
     Dosage: 2 TABLETS QD
     Dates: start: 20090901
  3. ASPIRIN [Concomitant]
     Indication: PROPHYLAXIS
     Dates: start: 20090401
  4. GARLIC [Concomitant]
     Indication: MEDICAL DIET
     Dosage: DAILY
     Route: 048
  5. FISH OIL [Concomitant]
     Indication: MEDICAL DIET
     Dosage: DAILY
     Route: 048
  6. WOMEN'S MULTIVITAMIN [Concomitant]
     Indication: VITAMIN SUPPLEMENTATION
     Dosage: DAILY

REACTIONS (2)
  - DRUG INEFFECTIVE [None]
  - FLUSHING [None]
